FAERS Safety Report 8311697-8 (Version None)
Quarter: 2012Q2

REPORT INFORMATION
  Report Type: 
  Country: None (occurrence: None)
  Receive Date: 20120425
  Receipt Date: 20120419
  Transmission Date: 20120825
  Serious: No
  Sender: FDA-Public Use
  Company Number: US-PFIZER INC-2012098077

PATIENT
  Age: 65 Year
  Sex: Male

DRUGS (5)
  1. MS CONTIN [Concomitant]
     Dosage: UNK
  2. CELEXA [Concomitant]
     Dosage: UNK
  3. LISINOPRIL [Concomitant]
     Dosage: UNK
  4. SUTENT [Suspect]
     Indication: RENAL CELL CARCINOMA
     Dosage: 50 MG, DAILY
     Route: 048
  5. MEGACE [Concomitant]
     Dosage: UNK

REACTIONS (1)
  - PLEURAL EFFUSION [None]
